FAERS Safety Report 23459849 (Version 4)
Quarter: 2024Q3

REPORT INFORMATION
  Report Type: Spontaneous
  Country: DE (occurrence: DE)
  Receive Date: 20240131
  Receipt Date: 20240709
  Transmission Date: 20241016
  Serious: Yes (Other)
  Sender: ALKEM
  Company Number: DE-ALKEM LABORATORIES LIMITED-DE-ALKEM-2024-00803

PATIENT
  Age: 51 Year
  Sex: Male
  Weight: 118 kg

DRUGS (24)
  1. NEBIVOLOL [Interacting]
     Active Substance: NEBIVOLOL
     Indication: Product used for unknown indication
     Dosage: 2.5 MILLIGRAM, BID (EVERY 12H)
     Route: 065
  2. RABEPRAZOLE [Suspect]
     Active Substance: RABEPRAZOLE
     Indication: Gastric pH increased
     Dosage: 20 MILLIGRAM, QD (EVERY 1 DAY), GASTRO-RESISTANT TABLET
     Route: 048
  3. SILDENAFIL [Interacting]
     Active Substance: SILDENAFIL
     Indication: Product used for unknown indication
     Dosage: UNK
     Route: 065
  4. NAPROXEN [Interacting]
     Active Substance: NAPROXEN
     Indication: Arthralgia
     Dosage: 500 MILLIGRAM
     Route: 065
  5. ABILIFY [Interacting]
     Active Substance: ARIPIPRAZOLE
     Indication: Product used for unknown indication
     Dosage: UNK
     Route: 065
  6. ISOPROMETHAZINE HYDROCHLORIDE [Interacting]
     Active Substance: ISOPROMETHAZINE HYDROCHLORIDE
     Indication: Product used for unknown indication
     Dosage: 37.5 MILLIGRAM
     Route: 065
  7. ISOPROMETHAZINE HYDROCHLORIDE [Interacting]
     Active Substance: ISOPROMETHAZINE HYDROCHLORIDE
     Dosage: 25 MILLIGRAM
     Route: 065
  8. BROMAZEPAM [Interacting]
     Active Substance: BROMAZEPAM
     Indication: Anxiety
     Dosage: 3 MILLIGRAM
     Route: 065
  9. BROMAZEPAM [Interacting]
     Active Substance: BROMAZEPAM
     Indication: Sedation
  10. CANDESARTAN [Interacting]
     Active Substance: CANDESARTAN
     Indication: Hypertension
     Dosage: UNK
     Route: 065
  11. FLUPENTIXOL [Interacting]
     Active Substance: FLUPENTIXOL
     Indication: Psychotic disorder
     Dosage: UNK
     Route: 065
  12. CLOZAPINE [Interacting]
     Active Substance: CLOZAPINE
     Indication: Product used for unknown indication
     Dosage: UNK
     Route: 065
  13. MELATONIN [Interacting]
     Active Substance: MELATONIN
     Indication: Product used for unknown indication
     Dosage: UNK
     Route: 065
  14. PROPRANOLOL [Interacting]
     Active Substance: PROPRANOLOL HYDROCHLORIDE
     Indication: Tremor
     Dosage: UNK
     Route: 065
  15. RAMIPRIL [Interacting]
     Active Substance: RAMIPRIL
     Indication: Hypertension
     Dosage: UNK
     Route: 065
  16. CARIPRAZINE [Interacting]
     Active Substance: CARIPRAZINE
     Indication: Product used for unknown indication
     Dosage: UNK
     Route: 065
  17. RISPERDAL [Interacting]
     Active Substance: RISPERIDONE
     Indication: Psychotic disorder
     Dosage: UNK
     Route: 065
  18. SEROQUEL [Interacting]
     Active Substance: QUETIAPINE FUMARATE
     Indication: Insomnia
     Dosage: 100 MILLIGRAM, QD
     Route: 065
  19. SEROQUEL [Interacting]
     Active Substance: QUETIAPINE FUMARATE
     Indication: Sedation
  20. TAVOR (LORAZEPAM) [Interacting]
     Active Substance: LORAZEPAM
     Indication: Anxiety
     Dosage: UNK
     Route: 065
  21. TAVOR (LORAZEPAM) [Interacting]
     Active Substance: LORAZEPAM
     Indication: Sedation
  22. CHLORPROTHIXENE [Interacting]
     Active Substance: CHLORPROTHIXENE
     Indication: Insomnia
     Dosage: 100 MILLIGRAM, QD (EVERY 1 DAY)
     Route: 065
  23. ZELDOX [Interacting]
     Active Substance: ZIPRASIDONE
     Indication: Product used for unknown indication
     Dosage: UNK
     Route: 065
  24. ZYPREXA [Interacting]
     Active Substance: OLANZAPINE
     Indication: Product used for unknown indication
     Dosage: UNK
     Route: 065

REACTIONS (8)
  - Suicidal ideation [Unknown]
  - Parkinsonism [Unknown]
  - Blood pressure increased [Unknown]
  - Drug interaction [Unknown]
  - Brain fog [Unknown]
  - Flatulence [Unknown]
  - Dizziness [Unknown]
  - Somnolence [Unknown]
